FAERS Safety Report 5910049-5 (Version None)
Quarter: 2008Q4

REPORT INFORMATION
  Report Type: 
  Country: None (occurrence: None)
  Receive Date: 20081007
  Receipt Date: 20070817
  Transmission Date: 20090506
  Serious: No
  Sender: FDA-Public Use
  Company Number: US-ASTRAZENECA-2007UW19830

PATIENT
  Age: 75 Year
  Sex: Female
  Weight: 83.9 kg

DRUGS (3)
  1. ARIMIDEX [Suspect]
     Indication: BREAST CANCER FEMALE
     Route: 048
     Dates: start: 20060801
  2. PEPCID [Concomitant]
  3. ALEVE [Concomitant]

REACTIONS (3)
  - ARTHRITIS [None]
  - HYPOAESTHESIA [None]
  - NIGHTMARE [None]
